FAERS Safety Report 6555375-4 (Version None)
Quarter: 2010Q1

REPORT INFORMATION
  Report Type: 
  Country: None (occurrence: None)
  Receive Date: 20100128
  Receipt Date: 20090730
  Transmission Date: 20100710
  Serious: No
  Sender: FDA-Public Use
  Company Number: A0800967A

PATIENT
  Age: 33 Year
  Sex: Female

DRUGS (2)
  1. WELLBUTRIN [Suspect]
     Indication: ANXIETY
     Route: 048
     Dates: start: 20090501
  2. PLAN B [Suspect]
     Indication: CONTRACEPTION
     Dosage: .75MG TWICE PER DAY
     Route: 048
     Dates: start: 20090627, end: 20090628

REACTIONS (2)
  - DRUG INTERACTION [None]
  - NAUSEA [None]
